FAERS Safety Report 4714951-1 (Version None)
Quarter: 2005Q3

REPORT INFORMATION
  Report Type: 
  Country: None (occurrence: None)
  Receive Date: 20050715
  Receipt Date: 20040202
  Transmission Date: 20060218
  Serious: Yes (Death)
  Sender: FDA-Public Use
  Company Number: BE-JNJFOC-20040200401

PATIENT
  Age: 76 Year
  Sex: Male

DRUGS (6)
  1. PROPULSID [Suspect]
     Dosage: START DATE APPROXIMATE
     Route: 065
  2. PROPULSID [Suspect]
     Dosage: STOP DATE APPROXIMATE
     Route: 065
  3. PROLOPA 125 [Concomitant]
     Route: 065
  4. PROLOPA 125 [Concomitant]
     Route: 065
  5. TONICA [Concomitant]
     Route: 065
  6. TONICA [Concomitant]
     Route: 065

REACTIONS (3)
  - BILE DUCT CANCER [None]
  - CONDITION AGGRAVATED [None]
  - MALIGNANT NEOPLASM PROGRESSION [None]
